FAERS Safety Report 8819137 (Version 3)
Quarter: 2012Q4

REPORT INFORMATION
  Report Type: 
  Country: BE (occurrence: BE)
  Receive Date: 20121001
  Receipt Date: 20121026
  Transmission Date: 20130627
  Serious: Yes (Other)
  Sender: FDA-Public Use
  Company Number: BE-MILLENNIUM PHARMACEUTICALS, INC.-2012-06682

PATIENT

DRUGS (4)
  1. VELCADE [Suspect]
     Indication: PRODUCT USED FOR UNKNOWN INDICATION
     Dosage: UNK
     Route: 065
     Dates: start: 20120920
  2. VELCADE [Suspect]
     Dosage: UNK
     Route: 065
     Dates: start: 20120927
  3. VELCADE [Suspect]
     Dosage: UNK
     Route: 065
     Dates: start: 20121018
  4. DEXAMETHASONE [Concomitant]
     Dosage: UNK

REACTIONS (6)
  - Bedridden [Unknown]
  - Back pain [Unknown]
  - Nausea [Unknown]
  - Constipation [Unknown]
  - Fatigue [Unknown]
  - Asthenia [Unknown]
